FAERS Safety Report 25660941 (Version 1)
Quarter: 2025Q3

REPORT INFORMATION
  Report Type: Spontaneous
  Country: GB (occurrence: GB)
  Receive Date: 20250808
  Receipt Date: 20250808
  Transmission Date: 20251020
  Serious: Yes (Disabling, Other)
  Sender: DR REDDYS
  Company Number: None

PATIENT
  Age: 33 Year
  Sex: Male

DRUGS (2)
  1. FINASTERIDE [Suspect]
     Active Substance: FINASTERIDE
     Indication: Gender dysphoria
     Dosage: 5MG DAILY
     Dates: start: 20250526, end: 20250604
  2. AVODART [Suspect]
     Active Substance: DUTASTERIDE
     Indication: Gender dysphoria
     Dosage: 0.5MG DAILY
     Dates: start: 20250715, end: 20250717

REACTIONS (6)
  - Brain fog [Not Recovered/Not Resolved]
  - Arthralgia [Recovered/Resolved]
  - Sensory loss [Not Recovered/Not Resolved]
  - Feeling jittery [Recovered/Resolved]
  - Disorientation [Not Recovered/Not Resolved]
  - Asthenia [Not Recovered/Not Resolved]
